FAERS Safety Report 4449435-1 (Version None)
Quarter: 2004Q3

REPORT INFORMATION
  Report Type: 
  Country: None (occurrence: None)
  Receive Date: 20040913
  Receipt Date: 20040902
  Transmission Date: 20050211
  Serious: Yes (Other)
  Sender: FDA-Public Use
  Company Number: 200410577BNE

PATIENT
  Age: 38 Year
  Sex: Male

DRUGS (4)
  1. ACARBOSE [Suspect]
     Dates: start: 20010101
  2. GLUCOPHAGE [Suspect]
     Dosage: ORAL
     Dates: start: 19970101
  3. GLIBENCLAMIDE [Suspect]
     Dates: start: 19990101
  4. GLIMEPIRIDE [Suspect]

REACTIONS (2)
  - PROTHROMBIN TIME PROLONGED [None]
  - THROMBOCYTOPENIA [None]
